FAERS Safety Report 16981153 (Version 1)
Quarter: 2019Q4

REPORT INFORMATION
  Report Type: Spontaneous
  Country: US (occurrence: US)
  Receive Date: 20191031
  Receipt Date: 20191031
  Transmission Date: 20200122
  Serious: No
  Sender: FDA-Public Use
  Company Number: US-009507513-1910USA013389

PATIENT
  Sex: Female

DRUGS (3)
  1. PRALUENT [Suspect]
     Active Substance: ALIROCUMAB
  2. CRESTOR [Suspect]
     Active Substance: ROSUVASTATIN CALCIUM
  3. ZETIA [Suspect]
     Active Substance: EZETIMIBE
     Route: 048

REACTIONS (2)
  - Muscle spasms [Unknown]
  - Pain in extremity [Unknown]
